FAERS Safety Report 17407927 (Version 3)
Quarter: 2020Q2

REPORT INFORMATION
  Report Type: Report from Study
  Country: US (occurrence: US)
  Receive Date: 20200212
  Receipt Date: 20200408
  Transmission Date: 20200713
  Serious: No
  Sender: FDA-Public Use
  Company Number: US-INCYTE CORPORATION-2020IN000225

PATIENT

DRUGS (3)
  1. JAKAFI [Suspect]
     Active Substance: RUXOLITINIB
     Indication: HAEMATOCRIT ABNORMAL
     Dosage: 5 MILLIGRAM, BID
     Route: 048
     Dates: start: 20191221
  2. JAKAFI [Suspect]
     Active Substance: RUXOLITINIB
     Indication: ERYTHROPOIESIS ABNORMAL
     Dosage: 5 MILLIGRAM, BID
     Route: 048
  3. JAKAFI [Suspect]
     Active Substance: RUXOLITINIB
     Indication: PLATELET COUNT INCREASED
     Dosage: 5 MILLIGRAM, BID
     Route: 048

REACTIONS (6)
  - Dizziness [Recovered/Resolved]
  - Dysphonia [Recovering/Resolving]
  - Asthenia [Recovered/Resolved]
  - Off label use [Unknown]
  - Oropharyngeal pain [Recovering/Resolving]
  - Cough [Recovering/Resolving]

NARRATIVE: CASE EVENT DATE: 202001
